FAERS Safety Report 6862564-8 (Version None)
Quarter: 2010Q3

REPORT INFORMATION
  Report Type: 
  Country: None (occurrence: None)
  Receive Date: 20100721
  Receipt Date: 20100712
  Transmission Date: 20110219
  Serious: Yes (Hospitalization)
  Sender: FDA-Public Use
  Company Number: FR-SANOFI-AVENTIS-2010SA040751

PATIENT
  Age: 14 Year
  Sex: Male

DRUGS (2)
  1. DESMOPRESSIN ACETATE [Suspect]
     Indication: PRODUCT USED FOR UNKNOWN INDICATION
     Dates: start: 20100601
  2. RISPERDAL [Suspect]
     Indication: PRODUCT USED FOR UNKNOWN INDICATION
     Route: 048
     Dates: start: 20100501

REACTIONS (4)
  - ABDOMINAL PAIN [None]
  - DYSTONIA [None]
  - MUSCLE SPASMS [None]
  - TORTICOLLIS [None]
